FAERS Safety Report 9773751 (Version 3)
Quarter: 2014Q1

REPORT INFORMATION
  Report Type: Report from Study
  Country: ES (occurrence: ES)
  Receive Date: 20131219
  Receipt Date: 20140314
  Transmission Date: 20141002
  Serious: Yes (Hospitalization)
  Sender: FDA-Public Use
  Company Number: ES-US-EMD SERONO, INC.-7257247

PATIENT
  Age: 14 Year
  Sex: Male

DRUGS (2)
  1. SAIZEN [Suspect]
     Indication: GROWTH HORMONE DEFICIENCY
     Route: 058
     Dates: start: 20071213, end: 201311
  2. SAIZEN [Suspect]
     Route: 058
     Dates: start: 20140305

REACTIONS (2)
  - Epilepsy [Recovered/Resolved]
  - Vertigo [Recovered/Resolved]
